FAERS Safety Report 5747482-0 (Version None)
Quarter: 2008Q2

REPORT INFORMATION
  Report Type: 
  Country: None (occurrence: None)
  Receive Date: 20080523
  Receipt Date: 20080515
  Transmission Date: 20081010
  Serious: Yes (Hospitalization, Disabling)
  Sender: FDA-Public Use
  Company Number: IE-ELI_LILLY_AND_COMPANY-IE200803001762

PATIENT
  Sex: Female
  Weight: 61 kg

DRUGS (5)
  1. FORTEO [Suspect]
     Indication: OSTEOPOROSIS
     Dosage: 20 UG, DAILY (1/D)
     Route: 058
     Dates: start: 20070703, end: 20070928
  2. PREMARIN [Concomitant]
     Indication: MENOPAUSAL SYMPTOMS
     Dosage: 0.625 NG, ON-OFF
     Route: 048
     Dates: start: 20070101
  3. CALCICHEW D3 [Concomitant]
     Dosage: UNK, UNKNOWN
     Route: 048
     Dates: start: 20030401
  4. FRUMIL [Concomitant]
     Dosage: UNK, UNKNOWN
     Route: 048
  5. ATACAND [Concomitant]
     Dosage: 8 MG, UNKNOWN
     Route: 048

REACTIONS (1)
  - OSTEONECROSIS [None]
